FAERS Safety Report 21470095 (Version 6)
Quarter: 2023Q2

REPORT INFORMATION
  Report Type: Report from Study
  Country: US (occurrence: US)
  Receive Date: 20221018
  Receipt Date: 20230427
  Transmission Date: 20230721
  Serious: No
  Sender: FDA-Public Use
  Company Number: US-ABBVIE-4159001

PATIENT
  Sex: Male

DRUGS (7)
  1. IMBRUVICA [Suspect]
     Active Substance: IBRUTINIB
     Indication: Mantle cell lymphoma
     Route: 048
     Dates: start: 20220525
  2. IMBRUVICA [Suspect]
     Active Substance: IBRUTINIB
     Indication: Mantle cell lymphoma
     Dosage: DISCONTINUED IN 2022
     Route: 048
     Dates: start: 20220316
  3. RITUXAN [Concomitant]
     Active Substance: RITUXIMAB
     Indication: Product used for unknown indication
  4. HUMAN IMMUNOGLOBULIN G [Concomitant]
     Active Substance: HUMAN IMMUNOGLOBULIN G
     Indication: Product used for unknown indication
  5. Immunoglobulin [Concomitant]
     Indication: Product used for unknown indication
     Route: 042
  6. MAGNESIUM [Concomitant]
     Active Substance: MAGNESIUM
     Indication: Product used for unknown indication
  7. HUMAN IMMUNOGLOBULIN G [Concomitant]
     Active Substance: HUMAN IMMUNOGLOBULIN G
     Indication: Product used for unknown indication

REACTIONS (23)
  - Night sweats [Not Recovered/Not Resolved]
  - Flatulence [Unknown]
  - Dyspnoea exertional [Unknown]
  - Contusion [Unknown]
  - Lacrimation increased [Not Recovered/Not Resolved]
  - Rash macular [Unknown]
  - Onychalgia [Not Recovered/Not Resolved]
  - Cellulitis [Unknown]
  - Muscle spasms [Not Recovered/Not Resolved]
  - Onychoclasis [Not Recovered/Not Resolved]
  - Neuropathy peripheral [Not Recovered/Not Resolved]
  - Chronic sinusitis [Recovered/Resolved]
  - Diarrhoea [Unknown]
  - Melanocytic naevus [Unknown]
  - Neuropathy peripheral [Not Recovered/Not Resolved]
  - White blood cell count decreased [Not Recovered/Not Resolved]
  - Platelet count decreased [Not Recovered/Not Resolved]
  - Haemoglobin decreased [Not Recovered/Not Resolved]
  - Tremor [Not Recovered/Not Resolved]
  - Anaemia [Unknown]
  - Eye pruritus [Not Recovered/Not Resolved]
  - Lymphocyte count decreased [Not Recovered/Not Resolved]
  - Skin exfoliation [Not Recovered/Not Resolved]
